FAERS Safety Report 4810257-0 (Version None)
Quarter: 2005Q4

REPORT INFORMATION
  Report Type: 
  Country: None (occurrence: None)
  Receive Date: 20051024
  Receipt Date: 20051013
  Transmission Date: 20060501
  Serious: Yes (Disabling, Other)
  Sender: FDA-Public Use
  Company Number: 2005-10-0687

PATIENT
  Sex: Female

DRUGS (1)
  1. INTRON A [Suspect]
     Indication: HEPATITIS C
     Dosage: SUBCUTANEOUS
     Route: 058
     Dates: start: 19980101, end: 19980101

REACTIONS (4)
  - ANTIPHOSPHOLIPID SYNDROME [None]
  - ERYTHROMELALGIA [None]
  - PAIN IN EXTREMITY [None]
  - THROMBOSIS [None]
